FAERS Safety Report 5165854-2 (Version None)
Quarter: 2006Q4

REPORT INFORMATION
  Report Type: 
  Country: None (occurrence: None)
  Receive Date: 20061128
  Receipt Date: 20061120
  Transmission Date: 20070319
  Serious: Yes (Other)
  Sender: FDA-Public Use
  Company Number: 2006BH014701

PATIENT

DRUGS (1)
  1. FENTANYL CITRATE [Suspect]
     Indication: DRUG USE FOR UNKNOWN INDICATION

REACTIONS (3)
  - BLOOD PRESSURE SYSTOLIC DECREASED [None]
  - FLUSHING [None]
  - OXYGEN SATURATION DECREASED [None]
